FAERS Safety Report 5311180-8 (Version None)
Quarter: 2007Q2

REPORT INFORMATION
  Report Type: 
  Country: None (occurrence: None)
  Receive Date: 20070430
  Receipt Date: 20070421
  Transmission Date: 20071010
  Serious: Yes (Hospitalization)
  Sender: FDA-Public Use
  Company Number: US-AMGEN-US221124

PATIENT
  Sex: Female

DRUGS (2)
  1. ENBREL [Suspect]
     Indication: RHEUMATOID ARTHRITIS
     Route: 058
     Dates: start: 20060817
  2. METHOTREXATE [Concomitant]
     Route: 048
     Dates: start: 20060601

REACTIONS (2)
  - BREAST COSMETIC SURGERY [None]
  - RASH [None]
